FAERS Safety Report 18428452 (Version 2)
Quarter: 2021Q1

REPORT INFORMATION
  Report Type: Spontaneous
  Country: US (occurrence: US)
  Receive Date: 20201026
  Receipt Date: 20210114
  Transmission Date: 20210419
  Serious: Yes (Other)
  Sender: FDA-Public Use
  Company Number: US-GILEAD-2020-0501246

PATIENT
  Age: 51 Year
  Sex: Male

DRUGS (2)
  1. DESCOVY [Concomitant]
     Active Substance: EMTRICITABINE\TENOFOVIR ALAFENAMIDE FUMARATE
  2. TRUVADA [Suspect]
     Active Substance: EMTRICITABINE\TENOFOVIR DISOPROXIL FUMARATE
     Indication: HIV INFECTION
     Dosage: UNK
     Route: 048
     Dates: start: 201001, end: 201710

REACTIONS (5)
  - Multiple fractures [Not Recovered/Not Resolved]
  - Bone loss [Not Recovered/Not Resolved]
  - Bone density decreased [Not Recovered/Not Resolved]
  - Osteonecrosis [Unknown]
  - Osteopenia [Not Recovered/Not Resolved]

NARRATIVE: CASE EVENT DATE: 202001
